FAERS Safety Report 20568872 (Version 1)
Quarter: 2022Q1

REPORT INFORMATION
  Report Type: Spontaneous
  Country: US (occurrence: None)
  Receive Date: 20220308
  Receipt Date: 20220308
  Transmission Date: 20220424
  Serious: No
  Sender: FDA-Public Use
  Company Number: US-ROCHE-2979258

PATIENT
  Sex: Female

DRUGS (5)
  1. EVRYSDI [Suspect]
     Active Substance: RISDIPLAM
     Indication: Spinal muscular atrophy
     Route: 065
  2. EVRYSDI [Suspect]
     Active Substance: RISDIPLAM
  3. EVRYSDI [Suspect]
     Active Substance: RISDIPLAM
  4. EVRYSDI [Suspect]
     Active Substance: RISDIPLAM
  5. EVRYSDI [Suspect]
     Active Substance: RISDIPLAM

REACTIONS (1)
  - Muscle spasms [Unknown]
